FAERS Safety Report 13975514 (Version 4)
Quarter: 2018Q1

REPORT INFORMATION
  Report Type: Spontaneous
  Country: US (occurrence: US)
  Receive Date: 20170915
  Receipt Date: 20180319
  Transmission Date: 20180508
  Serious: Yes (Other)
  Sender: FDA-Public Use
  Company Number: US-PFIZER INC-2017395155

PATIENT
  Age: 62 Year
  Sex: Female
  Weight: 53.97 kg

DRUGS (6)
  1. DILANTIN [Suspect]
     Active Substance: PHENYTOIN
     Dosage: UNK, ((200 MG ONE DAY AND 300 MG THE NEXT DAY/ 200MG THEN 300MG THE NEXT)
     Route: 048
  2. DILANTIN [Suspect]
     Active Substance: PHENYTOIN
     Dosage: 100 MG, 2X/DAY; (100MG CAPSULE IN THE MORNING AND 100MG CAPSULE AT NIGHT)
     Route: 048
     Dates: start: 2017
  3. KEPPRA [Concomitant]
     Active Substance: LEVETIRACETAM
     Dosage: DOUBLED THE DOSE
     Dates: start: 201701
  4. DILANTIN [Suspect]
     Active Substance: PHENYTOIN
     Indication: SEIZURE
     Dosage: 300MG AT NIGHT
     Route: 048
     Dates: start: 201707
  5. DILANTIN [Suspect]
     Active Substance: PHENYTOIN
     Dosage: 200 MG IN THE AM AND 100 MG AT BEDTIME
     Route: 048
  6. KEPPRA [Concomitant]
     Active Substance: LEVETIRACETAM
     Indication: SEIZURE
     Dosage: 500MG IN AM AND 500MG IN THE PM
     Route: 048
     Dates: start: 2011

REACTIONS (9)
  - Seizure [Recovered/Resolved]
  - Feeling abnormal [Recovering/Resolving]
  - Fatigue [Unknown]
  - Drug level increased [Not Recovered/Not Resolved]
  - Malaise [Unknown]
  - Abdominal discomfort [Recovered/Resolved]
  - Intentional product misuse [Unknown]
  - Migraine [Recovered/Resolved]
  - Somnolence [Recovering/Resolving]

NARRATIVE: CASE EVENT DATE: 201707
